FAERS Safety Report 4962396-1 (Version None)
Quarter: 2006Q2

REPORT INFORMATION
  Report Type: 
  Country: None (occurrence: None)
  Receive Date: 20060404
  Receipt Date: 20060404
  Transmission Date: 20061013
  Serious: No
  Sender: FDA-Public Use
  Company Number: None

PATIENT
  Age: 25 Year
  Sex: Female

DRUGS (1)
  1. PROPOFOL [Suspect]

REACTIONS (3)
  - BLISTER [None]
  - EXTRAVASATION [None]
  - NECROSIS [None]
